FAERS Safety Report 4774495-8 (Version None)
Quarter: 2005Q3

REPORT INFORMATION
  Report Type: 
  Country: None (occurrence: None)
  Receive Date: 20050920
  Receipt Date: 20050909
  Transmission Date: 20060218
  Serious: Yes (Death, Life-Threatening, Hospitalization)
  Sender: FDA-Public Use
  Company Number: CLOF-10100

PATIENT
  Age: 60 Year
  Sex: Male

DRUGS (1)
  1. CLOFARABINE [Suspect]
     Dosage: 40 MG/M2 QD X 5, IV
     Route: 042
     Dates: start: 20050422, end: 20050426

REACTIONS (5)
  - CEREBRAL HAEMORRHAGE [None]
  - FEBRILE NEUTROPENIA [None]
  - NEUTROPENIC SEPSIS [None]
  - RENAL FAILURE ACUTE [None]
  - RENAL IMPAIRMENT [None]
